FAERS Safety Report 17557885 (Version 1)
Quarter: 2020Q1

REPORT INFORMATION
  Report Type: Report from Study
  Country: US (occurrence: US)
  Receive Date: 20200319
  Receipt Date: 20200319
  Transmission Date: 20200409
  Serious: Yes (Other)
  Sender: FDA-Public Use
  Company Number: US-BRISTOL-MYERS SQUIBB COMPANY-BMS-2020-021599

PATIENT
  Age: 63 Year
  Sex: Female
  Weight: 80.74 kg

DRUGS (1)
  1. ABATACEPT [Suspect]
     Active Substance: ABATACEPT
     Indication: PSORIATIC ARTHROPATHY
     Dosage: 125 MILLIGRAM, QWK
     Route: 058
     Dates: start: 20190801

REACTIONS (3)
  - Device leakage [Unknown]
  - Device malfunction [Unknown]
  - Arthritis [Unknown]

NARRATIVE: CASE EVENT DATE: 20200309
